FAERS Safety Report 8119086-6 (Version None)
Quarter: 2012Q1

REPORT INFORMATION
  Report Type: 
  Country: None (occurrence: None)
  Receive Date: 20120207
  Receipt Date: 20120206
  Transmission Date: 20120608
  Serious: Yes (Death, Life-Threatening, Hospitalization)
  Sender: FDA-Public Use
  Company Number: CA-BAYER-2012-011864

PATIENT
  Age: 58 Year
  Sex: Male

DRUGS (1)
  1. SORAFENIB (RAF KINASE INHIBITOR) [Suspect]
     Indication: NEOPLASM MALIGNANT
     Dosage: 400 MG, BID
     Route: 048
     Dates: start: 20111001

REACTIONS (4)
  - PLEURAL EFFUSION [None]
  - ABDOMINAL PAIN [None]
  - HEPATIC NEOPLASM MALIGNANT [None]
  - CHOLANGITIS [None]
